FAERS Safety Report 13527017 (Version 1)
Quarter: 2017Q2

REPORT INFORMATION
  Report Type: Spontaneous
  Country: US (occurrence: US)
  Receive Date: 20170509
  Receipt Date: 20170509
  Transmission Date: 20170830
  Serious: Yes (Other)
  Sender: FDA-Public Use
  Company Number: None

PATIENT
  Age: 51 Year
  Sex: Male
  Weight: 74.7 kg

DRUGS (1)
  1. TESTOSTERONE CYPIONATE. [Suspect]
     Active Substance: TESTOSTERONE CYPIONATE
     Indication: ANDROGEN DEFICIENCY
     Dosage: ?          OTHER FREQUENCY:EVERY OTHER WEEK;?
     Route: 030

REACTIONS (8)
  - Hyperhidrosis [None]
  - Nipple pain [None]
  - Flushing [None]
  - Dyspnoea [None]
  - Sleep terror [None]
  - Nightmare [None]
  - Screaming [None]
  - Speech disorder [None]

NARRATIVE: CASE EVENT DATE: 20170508
